FAERS Safety Report 13641694 (Version 2)
Quarter: 2017Q3

REPORT INFORMATION
  Report Type: Spontaneous
  Country: US (occurrence: US)
  Receive Date: 20170612
  Receipt Date: 20170720
  Transmission Date: 20171127
  Serious: Yes (Other)
  Sender: FDA-Public Use
  Company Number: PHEH2017US016587

PATIENT
  Sex: Female

DRUGS (2)
  1. LETROZOLE. [Suspect]
     Active Substance: LETROZOLE
     Indication: BREAST CANCER
     Dosage: 2.5 MG, QD
     Route: 065
     Dates: start: 20160809
  2. IBRANCE [Suspect]
     Active Substance: PALBOCICLIB
     Indication: BREAST CANCER METASTATIC
     Dosage: 100 MG, QD (3 WEEKS ON/ 1 WEEK OFF)
     Route: 048
     Dates: start: 20160809

REACTIONS (5)
  - Chest discomfort [Unknown]
  - Alopecia [Unknown]
  - Neutropenia [Recovered/Resolved]
  - Fatigue [Unknown]
  - Bone marrow failure [Unknown]
